FAERS Safety Report 11482787 (Version 1)
Quarter: 2015Q3

REPORT INFORMATION
  Report Type: Spontaneous
  Country: US (occurrence: None)
  Receive Date: 20150908
  Receipt Date: 20150908
  Transmission Date: 20151125
  Serious: Yes (Other)
  Sender: FDA-Public Use
  Company Number: None

PATIENT
  Age: 73 Year
  Sex: Female
  Weight: 71.67 kg

DRUGS (8)
  1. INVOKANA [Suspect]
     Active Substance: CANAGLIFLOZIN
     Indication: TYPE 2 DIABETES MELLITUS
     Dosage: 1 TABLET PER DAY ONCE DAILY TAKEN BY MOUTH
     Route: 048
     Dates: start: 20150720, end: 20150730
  2. ATENOLOL. [Concomitant]
     Active Substance: ATENOLOL
  3. DILTIAZEM HYDROCHLORIDE EXTENDED RELEASE [Concomitant]
     Active Substance: DILTIAZEM HYDROCHLORIDE
  4. MAGNESIUM [Concomitant]
     Active Substance: MAGNESIUM
  5. METFORMIN [Concomitant]
     Active Substance: METFORMIN HYDROCHLORIDE
  6. VITAMIN D [Concomitant]
     Active Substance: CHOLECALCIFEROL
  7. CENTRUM FOR WOMEN [Concomitant]
  8. FISH OIL [Concomitant]
     Active Substance: FISH OIL

REACTIONS (2)
  - Muscle spasms [None]
  - Angina pectoris [None]

NARRATIVE: CASE EVENT DATE: 20150720
